FAERS Safety Report 24695735 (Version 2)
Quarter: 2024Q4

REPORT INFORMATION
  Report Type: Report from Study
  Country: US (occurrence: US)
  Receive Date: 20241204
  Receipt Date: 20241206
  Transmission Date: 20250115
  Serious: Yes (Hospitalization, Other)
  Sender: UCB
  Company Number: US-UCBSA-2024062214

PATIENT
  Sex: Female

DRUGS (7)
  1. CERTOLIZUMAB PEGOL [Suspect]
     Active Substance: CERTOLIZUMAB PEGOL
     Indication: Psoriatic arthropathy
     Dosage: 400 MILLIGRAM, EV 2 WEEKS(QOW)
     Route: 058
     Dates: start: 20241108, end: 20241122
  2. CLARITIN [Concomitant]
     Active Substance: LORATADINE
     Indication: Urticaria
     Dosage: UNK
     Dates: start: 202411
  3. CLARITIN [Concomitant]
     Active Substance: LORATADINE
     Indication: Swollen tongue
  4. CLARITIN [Concomitant]
     Active Substance: LORATADINE
     Indication: Mouth swelling
  5. EPINEPHRINE [Concomitant]
     Active Substance: EPINEPHRINE
     Indication: Urticaria
     Dosage: 2 DOSAGE FORM
     Dates: start: 202411
  6. EPINEPHRINE [Concomitant]
     Active Substance: EPINEPHRINE
     Indication: Swollen tongue
  7. EPINEPHRINE [Concomitant]
     Active Substance: EPINEPHRINE
     Indication: Mouth swelling

REACTIONS (3)
  - Drug hypersensitivity [Recovering/Resolving]
  - Abortion spontaneous [Unknown]
  - Maternal exposure during pregnancy [Unknown]

NARRATIVE: CASE EVENT DATE: 20240101
